FAERS Safety Report 9437755 (Version 1)
Quarter: 2013Q3

REPORT INFORMATION
  Report Type: Spontaneous
  Country: DE (occurrence: DE)
  Receive Date: 20130802
  Receipt Date: 20130802
  Transmission Date: 20140515
  Serious: Yes (Other)
  Sender: FDA-Public Use
  Company Number: DE-TEVA-421157GER

PATIENT
  Age: 1 Day
  Sex: Male

DRUGS (1)
  1. SERTRALIN [Suspect]
     Route: 063

REACTIONS (3)
  - Restlessness [Recovered/Resolved]
  - Frequent bowel movements [Unknown]
  - Exposure during breast feeding [Unknown]
